FAERS Safety Report 14678463 (Version 3)
Quarter: 2018Q2

REPORT INFORMATION
  Report Type: Spontaneous
  Country: DE (occurrence: DE)
  Receive Date: 20180326
  Receipt Date: 20180419
  Transmission Date: 20180711
  Serious: Yes (Hospitalization, Other)
  Sender: FDA-Public Use
  Company Number: DE-WEST-WARD PHARMACEUTICALS CORP.-DE-H14001-18-02280

PATIENT
  Age: 67 Year
  Sex: Female
  Weight: 60 kg

DRUGS (4)
  1. AMOXICLAV [Suspect]
     Active Substance: AMOXICILLIN\CLAVULANIC ACID
     Indication: BRONCHITIS
     Route: 065
     Dates: start: 20180207
  2. ELIQUIS [Suspect]
     Active Substance: APIXABAN
     Indication: CEREBROVASCULAR ACCIDENT PROPHYLAXIS
  3. AMOXICLAV [Suspect]
     Active Substance: AMOXICILLIN\CLAVULANIC ACID
     Indication: GASTROENTERITIS
  4. ELIQUIS [Suspect]
     Active Substance: APIXABAN
     Indication: PRODUCT USED FOR UNKNOWN INDICATION
     Route: 065
     Dates: start: 201502

REACTIONS (6)
  - Gastroenteritis [Unknown]
  - Cerebrovascular accident [Unknown]
  - Diarrhoea [Recovered/Resolved]
  - Bronchitis [Unknown]
  - Transient ischaemic attack [Recovered/Resolved]
  - Dental operation [Unknown]

NARRATIVE: CASE EVENT DATE: 201802
